FAERS Safety Report 6518028-4 (Version None)
Quarter: 2009Q4

REPORT INFORMATION
  Report Type: 
  Country: None (occurrence: None)
  Receive Date: 20091224
  Receipt Date: 20091217
  Transmission Date: 20100525
  Serious: Yes (Death, Hospitalization, Disabling, Other)
  Sender: FDA-Public Use
  Company Number: GB-BRISTOL-MYERS SQUIBB COMPANY-14903512

PATIENT
  Age: 55 Year
  Sex: Male
  Weight: 76 kg

DRUGS (9)
  1. ARIPIPRAZOLE [Suspect]
     Indication: PSYCHOTIC DISORDER
     Route: 048
     Dates: start: 20070821, end: 20091129
  2. CHLORPROMAZINE HCL [Suspect]
     Indication: PSYCHOTIC DISORDER
     Dates: start: 20080725, end: 20091129
  3. ASCORBIC ACID [Concomitant]
     Dates: start: 20070417
  4. ASPIRIN [Concomitant]
     Dates: start: 20090427
  5. CO-AMILOFRUSE [Concomitant]
     Dates: start: 20080604
  6. HYDROCORTISONE BUTYRATE [Concomitant]
     Dates: end: 20091022
  7. IMDUR [Concomitant]
     Dates: start: 20040604
  8. OMEPRAZOLE [Concomitant]
     Dates: start: 20070417
  9. QUININE BISULPHATE [Concomitant]
     Dates: start: 20070212

REACTIONS (4)
  - BLOOD BILIRUBIN INCREASED [None]
  - GAMMA-GLUTAMYLTRANSFERASE INCREASED [None]
  - LIVER DISORDER [None]
  - MULTI-ORGAN FAILURE [None]
